FAERS Safety Report 4964339-3 (Version None)
Quarter: 2006Q1

REPORT INFORMATION
  Report Type: 
  Country: None (occurrence: None)
  Receive Date: 20060331
  Receipt Date: 20060314
  Transmission Date: 20060701
  Serious: Yes (Hospitalization)
  Sender: FDA-Public Use
  Company Number: GBT031201085

PATIENT
  Age: 45 Year
  Sex: Female
  Weight: 63 kg

DRUGS (12)
  1. GEMCITABINE  HYDROCHLORIDE (GEMCITABINE  HYDROCHLORIDE ) VIAL [Suspect]
     Indication: BREAST CANCER
     Dosage: 2025 MG, OTHER, UNK
     Route: 050
     Dates: start: 20030915, end: 20030915
  2. PACLITAXEL [Suspect]
     Indication: BREAST CANCER
     Dosage: 282 MG, OTHER, UNK
     Route: 050
     Dates: start: 20030915, end: 20030915
  3. CYCLOPHOSPHAMIDE [Suspect]
     Indication: BREAST CANCER
     Dosage: 980 MG , OTHER, UNK
     Route: 065
     Dates: start: 20030509, end: 20030806
  4. *EPIRUBICIN (*EPIRUBICINE) UNKNOWN [Suspect]
     Indication: BREAST CANCER
     Dosage: SEE IMAGE
     Route: 050
     Dates: start: 20030509, end: 20030509
  5. *EPIRUBICIN (*EPIRUBICINE) UNKNOWN [Suspect]
     Indication: BREAST CANCER
     Dosage: SEE IMAGE
     Route: 050
     Dates: start: 20030529, end: 20030529
  6. *EPIRUBICIN (*EPIRUBICINE) UNKNOWN [Suspect]
     Indication: BREAST CANCER
     Dosage: SEE IMAGE
     Route: 050
     Dates: start: 20030619, end: 20030619
  7. *EPIRUBICIN (*EPIRUBICINE) UNKNOWN [Suspect]
     Indication: BREAST CANCER
     Dosage: SEE IMAGE
     Route: 050
     Dates: start: 20030806, end: 20030806
  8. WARFARIN SODIUM [Concomitant]
  9. CO-DYDRAMOL (CO-DYDRAMOL) [Concomitant]
  10. DICLOFENAC (DICLOFENAC) [Concomitant]
  11. LANSOPRAZOLE [Concomitant]
  12. DEXAMETHASONE [Concomitant]

REACTIONS (2)
  - ERYTHEMA MULTIFORME [None]
  - PARANEOPLASTIC SYNDROME [None]
